FAERS Safety Report 10204873 (Version 1)
Quarter: 2014Q2

REPORT INFORMATION
  Report Type: Spontaneous
  Country: FR (occurrence: None)
  Receive Date: 20140527
  Receipt Date: 20140527
  Transmission Date: 20141212
  Serious: Yes (Hospitalization)
  Sender: FDA-Public Use
  Company Number: 2350586

PATIENT
  Age: 76 Year
  Sex: Male

DRUGS (11)
  1. CARBOPLATIN [Suspect]
     Indication: SQUAMOUS CELL CARCINOMA OF LUNG
     Dosage: (NOT OTHERWISE SPECIFIED)
     Route: 042
     Dates: start: 20140409, end: 20140409
  2. REPAGLINIDE [Concomitant]
  3. GALVUS [Concomitant]
  4. EUPANTOL [Concomitant]
  5. SERESTA [Concomitant]
  6. SINGULAIR [Concomitant]
  7. DONEPEZIL [Concomitant]
  8. SYMBICORT [Concomitant]
  9. VERSATIS [Concomitant]
  10. AUC 2 [Concomitant]
  11. EPREX [Concomitant]

REACTIONS (4)
  - Oxygen saturation decreased [None]
  - Tachycardia [None]
  - Rash erythematous [None]
  - Anaphylactic reaction [None]
